FAERS Safety Report 5239939-6 (Version None)
Quarter: 2007Q1

REPORT INFORMATION
  Report Type: 
  Country: None (occurrence: None)
  Receive Date: 20070216
  Receipt Date: 20070207
  Transmission Date: 20070707
  Serious: Yes (Other)
  Sender: FDA-Public Use
  Company Number: US-PFIZER INC-2006059081

PATIENT
  Sex: Female

DRUGS (9)
  1. CELEBREX [Suspect]
     Indication: ILL-DEFINED DISORDER
     Route: 048
  2. BEXTRA [Suspect]
     Indication: ILL-DEFINED DISORDER
     Route: 048
  3. BEXTRA [Suspect]
     Route: 048
  4. VIOXX [Suspect]
     Indication: ILL-DEFINED DISORDER
     Route: 048
  5. AMITRIPTYLINE HCL [Concomitant]
  6. ISOSORBIDE [Concomitant]
     Dates: start: 20030110
  7. LANOXIN [Concomitant]
     Dates: start: 20020214
  8. POTASSIUM ACETATE [Concomitant]
  9. OXYBUTYNIN [Concomitant]
     Dates: start: 20021125

REACTIONS (2)
  - CEREBROVASCULAR ACCIDENT [None]
  - MYOCARDIAL INFARCTION [None]
